FAERS Safety Report 4491490-7 (Version None)
Quarter: 2004Q4

REPORT INFORMATION
  Report Type: 
  Country: None (occurrence: None)
  Receive Date: 20041101
  Receipt Date: 20041020
  Transmission Date: 20050328
  Serious: Yes (Other)
  Sender: FDA-Public Use
  Company Number: 2004-10-1172

PATIENT
  Age: 46 Year
  Sex: Female

DRUGS (2)
  1. CLARINEX [Suspect]
     Indication: CONJUNCTIVITIS
     Dosage: 1 TABLET/DAY ORAL
     Route: 048
     Dates: start: 20030701, end: 20030701
  2. HERBAL MEDICATION [Concomitant]

REACTIONS (7)
  - DYSPHAGIA [None]
  - DYSPNOEA [None]
  - ECZEMA [None]
  - FACE OEDEMA [None]
  - HYPERSENSITIVITY [None]
  - PHARYNX DISCOMFORT [None]
  - TONGUE OEDEMA [None]
